FAERS Safety Report 9580211 (Version 1)
Quarter: 2013Q3

REPORT INFORMATION
  Report Type: Spontaneous
  Country: US (occurrence: None)
  Receive Date: 20130916
  Receipt Date: 20130916
  Transmission Date: 20140515
  Serious: Yes (Other)
  Sender: FDA-Public Use
  Company Number: JPI-P-029856

PATIENT
  Age: 42 Year
  Sex: Male

DRUGS (9)
  1. XYREM [Suspect]
     Indication: SOMNOLENCE
     Dosage: 4 GRAMS FOLLOWED BY 12 GRAMS, ORAL
     Dates: start: 20130203, end: 201302
  2. XYREM [Suspect]
     Indication: NARCOLEPSY
     Dosage: 4 GRAMS FOLLOWED BY 12 GRAMS, ORAL
     Dates: start: 20130203, end: 201302
  3. NEBIVOLOL HYDROCHLORIDE [Concomitant]
  4. MULTIPLE UNSPECIFIED MEDICTIONS [Concomitant]
  5. DULOXETINE HYDROCHLORIDE [Concomitant]
  6. GABAPENTIN [Concomitant]
  7. MODAFINIL [Concomitant]
  8. ACETAMINOPHEN [Concomitant]
  9. BUSPIRONE [Concomitant]

REACTIONS (12)
  - Blood pressure increased [None]
  - Condition aggravated [None]
  - Palpitations [None]
  - Cough [None]
  - Feeling hot [None]
  - Peripheral coldness [None]
  - Cold sweat [None]
  - Temperature intolerance [None]
  - Anxiety [None]
  - Headache [None]
  - Nausea [None]
  - Hyperhidrosis [None]
